FAERS Safety Report 9046249 (Version 1)
Quarter: 2013Q1

REPORT INFORMATION
  Report Type: Spontaneous
  Country: US (occurrence: None)
  Receive Date: 20130128
  Receipt Date: 20130128
  Transmission Date: 20140127
  Serious: No
  Sender: FDA-Public Use
  Company Number: None

PATIENT
  Age: 74 Year
  Sex: Female

DRUGS (9)
  1. REVLIMID [Suspect]
     Indication: PLASMA CELL MYELOMA
     Route: 048
     Dates: start: 201207, end: 201208
  2. BECLOMETHASONE [Concomitant]
  3. FLUTICASONE [Concomitant]
  4. MELOXICAM [Concomitant]
  5. TROPIUM [Concomitant]
  6. ATORVASTATIN [Concomitant]
  7. OMEPRAZOLE [Concomitant]
  8. TRIAMTERENE-HCTZ [Concomitant]
  9. SIMVASTATIN [Concomitant]

REACTIONS (1)
  - Rash papular [None]
